FAERS Safety Report 7990664-8 (Version None)
Quarter: 2011Q4

REPORT INFORMATION
  Report Type: 
  Country: None (occurrence: None)
  Receive Date: 20111219
  Receipt Date: 20111215
  Transmission Date: 20120403
  Serious: No
  Sender: FDA-Public Use
  Company Number: US-TEVA-311414USA

PATIENT
  Sex: Female
  Weight: 63.56 kg

DRUGS (2)
  1. PLAN B ONE-STEP [Suspect]
     Indication: POST COITAL CONTRACEPTION
     Dosage: 1.5 MILLIGRAM;
     Route: 048
  2. DEPO-PROVERA [Concomitant]
     Indication: CONTRACEPTION
     Dates: start: 20111011

REACTIONS (6)
  - LACTATION DISORDER [None]
  - MENSTRUATION IRREGULAR [None]
  - HOT FLUSH [None]
  - NAUSEA [None]
  - ABDOMINAL DISCOMFORT [None]
  - DIZZINESS [None]
